FAERS Safety Report 16559732 (Version 3)
Quarter: 2022Q4

REPORT INFORMATION
  Report Type: Spontaneous
  Country: US (occurrence: US)
  Receive Date: 20190711
  Receipt Date: 20221102
  Transmission Date: 20230113
  Serious: Yes (Hospitalization, Other)
  Sender: FDA-Public Use
  Company Number: US-PFIZER INC-2019292834

PATIENT
  Age: 71 Year
  Sex: Female
  Weight: 70.31 kg

DRUGS (1)
  1. NIFEDIPINE [Suspect]
     Active Substance: NIFEDIPINE
     Dosage: UNK
     Dates: start: 201909

REACTIONS (17)
  - Pneumothorax [Unknown]
  - Hypertension [Unknown]
  - Flatulence [Unknown]
  - Myocardial injury [Unknown]
  - Seizure [Unknown]
  - Drug ineffective [Unknown]
  - Drug hypersensitivity [Unknown]
  - Dizziness [Unknown]
  - Fall [Unknown]
  - Tooth fracture [Unknown]
  - Joint injury [Unknown]
  - Urticaria [Unknown]
  - Pruritus [Unknown]
  - Gastrooesophageal reflux disease [Unknown]
  - Blister [Not Recovered/Not Resolved]
  - Palpitations [Unknown]
  - Eye disorder [Unknown]

NARRATIVE: CASE EVENT DATE: 20191006
